FAERS Safety Report 10928792 (Version 2)
Quarter: 2015Q2

REPORT INFORMATION
  Report Type: Spontaneous
  Country: US (occurrence: US)
  Receive Date: 20150319
  Receipt Date: 20150524
  Transmission Date: 20150821
  Serious: No
  Sender: FDA-Public Use
  Company Number: US-JNJFOC-20150110842

PATIENT
  Age: 55 Year
  Sex: Female
  Weight: 113 kg

DRUGS (12)
  1. TOPIRAMATE. [Suspect]
     Active Substance: TOPIRAMATE
     Indication: DRUG THERAPY
     Route: 048
  2. CORICIDIN (ACETAMINOPHEN/CHLORPHENIRAMINE) [Suspect]
     Active Substance: ACETAMINOPHEN\CHLORPHENIRAMINE
     Indication: NASOPHARYNGITIS
     Dosage: 2-3 PILLS A DAY
     Route: 048
  3. TACLONEX [Suspect]
     Active Substance: BETAMETHASONE DIPROPIONATE\CALCIPOTRIENE\CALCIPOTRIENE HYDRATE
     Indication: PSORIASIS
     Route: 061
  4. LYRICA [Suspect]
     Active Substance: PREGABALIN
     Indication: NEUROPATHY PERIPHERAL
     Dosage: ONE IN THE AFTERNOON, ONE AT NIGHT, TWO IN THE MIDDLE OF THE NIGHT, ONE IN THE MORNING
     Route: 048
     Dates: start: 201208
  5. PROAIR HFA [Suspect]
     Active Substance: ALBUTEROL SULFATE
     Indication: MULTIPLE ALLERGIES
     Route: 055
  6. ZOVIRAX [Suspect]
     Active Substance: ACYCLOVIR
     Indication: ORAL HERPES
     Route: 061
  7. HUMIRA [Suspect]
     Active Substance: ADALIMUMAB
     Indication: PRODUCT USED FOR UNKNOWN INDICATION
     Dosage: ONCE A WEEK-EVERY OTHER WEEK
     Route: 065
  8. ABILIFY [Suspect]
     Active Substance: ARIPIPRAZOLE
     Indication: MAJOR DEPRESSION
     Route: 065
  9. FLUOXETINE HCL [Suspect]
     Active Substance: FLUOXETINE HYDROCHLORIDE
     Indication: PRODUCT USED FOR UNKNOWN INDICATION
     Dosage: 2 AT NIGHT
     Route: 065
  10. METHYLPHENIDATE [Suspect]
     Active Substance: METHYLPHENIDATE
     Indication: CHRONIC FATIGUE SYNDROME
     Route: 048
  11. PROAIR HFA [Suspect]
     Active Substance: ALBUTEROL SULFATE
     Indication: ASTHMA
     Route: 055
  12. CORICIDIN (ACETAMINOPHEN/CHLORPHENIRAMINE) [Suspect]
     Active Substance: ACETAMINOPHEN\CHLORPHENIRAMINE
     Indication: COUGH
     Dosage: 2-3 PILLS A DAY
     Route: 048

REACTIONS (8)
  - Oral herpes [Not Recovered/Not Resolved]
  - Somnolence [Not Recovered/Not Resolved]
  - Narcolepsy [Not Recovered/Not Resolved]
  - Hypertension [Not Recovered/Not Resolved]
  - Nasopharyngitis [Not Recovered/Not Resolved]
  - Weight decreased [Unknown]
  - Decreased immune responsiveness [Unknown]
  - Corrective lens user [Unknown]

NARRATIVE: CASE EVENT DATE: 201412
